FAERS Safety Report 17190938 (Version 1)
Quarter: 2019Q4

REPORT INFORMATION
  Report Type: Spontaneous
  Country: US (occurrence: US)
  Receive Date: 20191130
  Receipt Date: 20191130
  Transmission Date: 20200122
  Serious: Yes (Hospitalization)
  Sender: FDA-Public Use
  Company Number: None

PATIENT
  Age: 56 Year
  Sex: Female

DRUGS (7)
  1. FENOFIBRATE. [Concomitant]
     Active Substance: FENOFIBRATE
  2. LOSARTAN. [Concomitant]
     Active Substance: LOSARTAN
  3. GLATIRAMER 40MG [Suspect]
     Active Substance: GLATIRAMER
     Indication: MULTIPLE SCLEROSIS
     Route: 058
     Dates: start: 20190424
  4. GABAPENTIN. [Concomitant]
     Active Substance: GABAPENTIN
  5. RIZATRIPTAN. [Concomitant]
     Active Substance: RIZATRIPTAN
  6. TOLTERODONE [Concomitant]
  7. BUPRPN [Concomitant]

REACTIONS (2)
  - Treatment noncompliance [None]
  - Therapy cessation [None]
